FAERS Safety Report 25687684 (Version 2)
Quarter: 2025Q3

REPORT INFORMATION
  Report Type: Spontaneous
  Country: GB (occurrence: GB)
  Receive Date: 20250817
  Receipt Date: 20250825
  Transmission Date: 20251021
  Serious: Yes (Death, Life-Threatening, Hospitalization)
  Sender: MACLEODS
  Company Number: GB-MACLEODS PHARMA-MAC2025054675

PATIENT

DRUGS (4)
  1. DOXYCYCLINE [Suspect]
     Active Substance: DOXYCYCLINE
     Indication: Hyperkeratosis
     Route: 065
  2. DOXYCYCLINE [Suspect]
     Active Substance: DOXYCYCLINE
     Indication: Hyperkeratosis
  3. FLUCLOXACILLIN [Suspect]
     Active Substance: FLUCLOXACILLIN
     Indication: Hyperkeratosis
     Route: 065
  4. FLUCLOXACILLIN [Suspect]
     Active Substance: FLUCLOXACILLIN
     Indication: Hyperkeratosis

REACTIONS (6)
  - SJS-TEN overlap [Fatal]
  - Acute kidney injury [Fatal]
  - Pseudomonas infection [Fatal]
  - Hypothermia [Fatal]
  - Full blood count decreased [Fatal]
  - Condition aggravated [Not Recovered/Not Resolved]
